FAERS Safety Report 4462262-4 (Version None)
Quarter: 2004Q3

REPORT INFORMATION
  Report Type: 
  Country: None (occurrence: None)
  Receive Date: 20040929
  Receipt Date: 20040824
  Transmission Date: 20050211
  Serious: Yes (Life-Threatening, Hospitalization)
  Sender: FDA-Public Use
  Company Number: FR-GLAXOSMITHKLINE-B0343479A

PATIENT
  Age: 61 Year
  Sex: Female
  Weight: 59 kg

DRUGS (7)
  1. AVANDIA [Suspect]
     Indication: DIABETES MELLITUS NON-INSULIN-DEPENDENT
     Route: 048
     Dates: start: 20030804
  2. DAONIL [Suspect]
     Indication: DIABETES MELLITUS NON-INSULIN-DEPENDENT
     Route: 048
  3. AMLOR [Concomitant]
     Dosage: 5MG PER DAY
     Route: 048
  4. FONZYLANE [Concomitant]
     Indication: DIABETIC VASCULAR DISORDER
     Dosage: 300MG TWICE PER DAY
     Route: 048
  5. PLAVIX [Concomitant]
     Dosage: 75MG PER DAY
     Route: 048
  6. LEVOTHYROX [Concomitant]
     Dosage: 125MG PER DAY
     Route: 048
  7. APROVEL [Concomitant]
     Dosage: 150MG PER DAY
     Route: 048

REACTIONS (4)
  - COMA [None]
  - DRUG INTERACTION [None]
  - HYPOGLYCAEMIA [None]
  - MALAISE [None]
